FAERS Safety Report 22119467 (Version 1)
Quarter: 2023Q1

REPORT INFORMATION
  Report Type: Spontaneous
  Country: IT (occurrence: IT)
  Receive Date: 20230321
  Receipt Date: 20230321
  Transmission Date: 20230417
  Serious: Yes (Other)
  Sender: FDA-Public Use
  Company Number: IT-009507513-2303ITA003388

PATIENT
  Sex: Male

DRUGS (2)
  1. DENOSUMAB [Suspect]
     Active Substance: DENOSUMAB
     Indication: Non-small cell lung cancer metastatic
     Dosage: 120 MILLIGRAM, Q4WK (EVERY 28 DAYS)
     Route: 058
     Dates: start: 201809, end: 2021
  2. PEMBROLIZUMAB [Suspect]
     Active Substance: PEMBROLIZUMAB
     Indication: Non-small cell lung cancer metastatic
     Dosage: 200 MILLIGRAM, Q3WK (200 MILLIGRAM, Q3WK (FLAT DOSE OF 200 MILLIGRAM, Q3W))
     Route: 065
     Dates: start: 201809

REACTIONS (4)
  - Malignant neoplasm progression [Recovering/Resolving]
  - Therapy partial responder [Recovered/Resolved]
  - Product use issue [Unknown]
  - Therapy partial responder [Recovered/Resolved]

NARRATIVE: CASE EVENT DATE: 20180901
